FAERS Safety Report 5909162-8 (Version None)
Quarter: 2008Q4

REPORT INFORMATION
  Report Type: 
  Country: None (occurrence: None)
  Receive Date: 20081006
  Receipt Date: 20081003
  Transmission Date: 20090506
  Serious: Yes (Hospitalization)
  Sender: FDA-Public Use
  Company Number: FR-WYE-G02288908

PATIENT
  Sex: Male

DRUGS (2)
  1. ADVIL [Suspect]
     Indication: JOINT INJURY
     Dosage: UNKNOWN
     Route: 048
     Dates: start: 20080705, end: 20080708
  2. LOVENOX [Suspect]
     Indication: THROMBOSIS PROPHYLAXIS
     Route: 058
     Dates: start: 20080705, end: 20080708

REACTIONS (2)
  - GASTRIC ULCER HAEMORRHAGE [None]
  - HYPOVOLAEMIC SHOCK [None]
